FAERS Safety Report 14985117 (Version 1)
Quarter: 2018Q2

REPORT INFORMATION
  Report Type: Other
  Country: ES (occurrence: ES)
  Receive Date: 20180607
  Receipt Date: 20180607
  Transmission Date: 20180711
  Serious: Yes (Other)
  Sender: FDA-Public Use
  Company Number: ES-MACLEODS PHARMACEUTICALS US LTD-MAC2018014150

PATIENT

DRUGS (10)
  1. EPLERENONE. [Concomitant]
     Active Substance: EPLERENONE
     Indication: PRODUCT USED FOR UNKNOWN INDICATION
     Dosage: 25 MILLIGRAM, QD (EVERY 24 HOURS || DOSAGE UNIT FREQUENCY: 25 MG-MILLIGRAMS || DOSAGE PER DOSE: 25 M
     Route: 048
     Dates: start: 20161201, end: 20161207
  2. METHYLPREDNISOLONE. [Concomitant]
     Active Substance: METHYLPREDNISOLONE
     Indication: PRODUCT USED FOR UNKNOWN INDICATION
     Dosage: 20 MILLIGRAM, TID (EVERY 8 HOURS, WITH A SUBSEQUENT DESCENDING PATTERN EVERY 12 HOURS || DOSAGE UNIT
     Route: 042
     Dates: start: 20161201, end: 20161207
  3. ASPIRIN. [Concomitant]
     Active Substance: ASPIRIN
     Indication: PRODUCT USED FOR UNKNOWN INDICATION
     Dosage: 100 MILLIGRAM, QD (EVERY 24 HOURS || DOSAGE UNIT FREQUENCY: 100 MG-MILLIGRAMS || DOSAGE PER DOSE: 10
     Route: 048
     Dates: start: 20161201, end: 20161207
  4. BISOPROLOL [Concomitant]
     Active Substance: BISOPROLOL
     Indication: PRODUCT USED FOR UNKNOWN INDICATION
     Dosage: 2 MILLIGRAM, QD (EVERY 24 HOURS || DOSAGE UNIT FREQUENCY: 2 MG-MILLIGRAMS || DOSAGE PER DOSE: 2 MG-M
     Route: 048
     Dates: start: 20161201, end: 20161207
  5. LEVOFLOXACIN. [Suspect]
     Active Substance: LEVOFLOXACIN
     Indication: PRODUCT USED FOR UNKNOWN INDICATION
     Dosage: 500 MILLIGRAM, QD, DIA
     Route: 048
     Dates: start: 20161201, end: 20161207
  6. PARACETAMOL [Concomitant]
     Active Substance: ACETAMINOPHEN
     Indication: PRODUCT USED FOR UNKNOWN INDICATION
     Dosage: 1 GRAM, BID (EVERY 12 HOURS || DOSAGE UNIT FREQUENCY: 2 G-GRAMS || DOSAGE PER DOSE: 1 G-GRAMS || NO.
     Route: 048
     Dates: start: 20161201, end: 20161207
  7. NITROGLYCERINE [Concomitant]
     Active Substance: NITROGLYCERIN
     Indication: PRODUCT USED FOR UNKNOWN INDICATION
     Dosage: UNK, (EVERY 24 HOURS || FREQUENCY UNIT: 0 DAY)
     Route: 062
     Dates: start: 20161202, end: 20161207
  8. SIMVASTATIN. [Concomitant]
     Active Substance: SIMVASTATIN
     Indication: PRODUCT USED FOR UNKNOWN INDICATION
     Dosage: 40 MILLIGRAM, QD
     Route: 048
     Dates: start: 20161201, end: 20161207
  9. OMEPRAZOLE. [Concomitant]
     Active Substance: OMEPRAZOLE
     Indication: PRODUCT USED FOR UNKNOWN INDICATION
     Dosage: 40 MILLIGRAM, QD (EVERY 24 HOURS || DOSAGE UNIT FREQUENCY: 40 MG-MILLIGRAMS || DOSAGE PER DOSE: 40 M
     Route: 048
     Dates: start: 20161201, end: 20161207
  10. ACETYLCYSTEINE. [Concomitant]
     Active Substance: ACETYLCYSTEINE
     Indication: PRODUCT USED FOR UNKNOWN INDICATION
     Dosage: 200 MILLIGRAM, TID (EVERY 8 HOURS || DOSAGE UNIT FREQUENCY: 600 MG-MILLIGRAMS || DOSAGE PER DOSE: 20
     Route: 048
     Dates: start: 20161201, end: 20161207

REACTIONS (1)
  - Hepatitis [Recovered/Resolved]

NARRATIVE: CASE EVENT DATE: 20161202
